FAERS Safety Report 18606910 (Version 2)
Quarter: 2021Q1

REPORT INFORMATION
  Report Type: Spontaneous
  Country: ES (occurrence: ES)
  Receive Date: 20201212
  Receipt Date: 20210217
  Transmission Date: 20210419
  Serious: No
  Sender: FDA-Public Use
  Company Number: ES-LUPIN PHARMACEUTICALS INC.-2020-10001

PATIENT
  Sex: Female

DRUGS (4)
  1. METHOTREXATE. [Concomitant]
     Active Substance: METHOTREXATE
     Indication: IDIOPATHIC ORBITAL INFLAMMATION
     Dosage: UNK (10?15?20 MG PER WEEK)
     Route: 058
  2. TRIAMCINOLONE [Suspect]
     Active Substance: TRIAMCINOLONE
     Indication: IDIOPATHIC ORBITAL INFLAMMATION
     Dosage: 1 MILLILITER (FORMULATION STRENGTH: 40 ML/MG.)
     Route: 065
  3. METHYLPREDNISOLONE. [Suspect]
     Active Substance: METHYLPREDNISOLONE
     Indication: IDIOPATHIC ORBITAL INFLAMMATION
     Dosage: 500 MILLIGRAM, QD (RECEIVED BOLUSES SEVERAL TIMES)
     Route: 065
  4. MABTHERA [Concomitant]
     Active Substance: RITUXIMAB
     Indication: IDIOPATHIC ORBITAL INFLAMMATION
     Dosage: 375 MILLIGRAM/SQ. METER
     Route: 042

REACTIONS (1)
  - Hypertension [Recovering/Resolving]
